FAERS Safety Report 23419528 (Version 3)
Quarter: 2024Q1

REPORT INFORMATION
  Report Type: Spontaneous
  Country: US (occurrence: US)
  Receive Date: 20240118
  Receipt Date: 20240130
  Transmission Date: 20240410
  Serious: No
  Sender: FDA-Public Use
  Company Number: US-ABBVIE-5592110

PATIENT
  Sex: Female

DRUGS (1)
  1. VIBERZI [Suspect]
     Active Substance: ELUXADOLINE
     Indication: Product used for unknown indication
     Dosage: 75MG, FORM STRENGTH: 75 MILLIGRAM
     Route: 048

REACTIONS (7)
  - Feeding disorder [Unknown]
  - Weight decreased [Unknown]
  - Vomiting [Unknown]
  - Labyrinthitis [Unknown]
  - Diarrhoea [Unknown]
  - Oral discomfort [Unknown]
  - Unevaluable event [Unknown]
